FAERS Safety Report 6450523-9 (Version None)
Quarter: 2009Q4

REPORT INFORMATION
  Report Type: 
  Country: None (occurrence: None)
  Receive Date: 20091123
  Receipt Date: 20091112
  Transmission Date: 20100525
  Serious: Yes (Hospitalization)
  Sender: FDA-Public Use
  Company Number: PHHO2009US13613

PATIENT
  Sex: Male
  Weight: 95.238 kg

DRUGS (8)
  1. RAD 666 RAD+TAB [Suspect]
     Indication: GLIOBLASTOMA MULTIFORME
     Dosage: UNK
     Dates: start: 20091005, end: 20091101
  2. TEMOZOLOMIDE COMP-TEMO+ [Suspect]
     Indication: GLIOBLASTOMA MULTIFORME
     Dosage: UNK
     Dates: start: 20090727, end: 20090904
  3. AVASTIN COMP-AVA+ [Suspect]
     Indication: GLIOBLASTOMA MULTIFORME
     Dosage: UNK
     Dates: start: 20090727, end: 20090908
  4. AVASTIN COMP-AVA+ [Suspect]
     Dosage: NO TREATMENT
     Dates: start: 20090909, end: 20091004
  5. AVASTIN COMP-AVA+ [Suspect]
     Dosage: UNK
     Dates: start: 20091005, end: 20091019
  6. KEPRA [Concomitant]
  7. AMLODIPINE [Concomitant]
  8. XANAX [Concomitant]

REACTIONS (4)
  - DEEP VEIN THROMBOSIS [None]
  - HEADACHE [None]
  - NAUSEA [None]
  - VOMITING [None]
